FAERS Safety Report 20415262 (Version 1)
Quarter: 2022Q1

REPORT INFORMATION
  Report Type: Spontaneous
  Country: ES (occurrence: ES)
  Receive Date: 20220202
  Receipt Date: 20220202
  Transmission Date: 20220423
  Serious: Yes (Hospitalization)
  Sender: FDA-Public Use
  Company Number: None

PATIENT
  Age: 31 Year
  Sex: Male

DRUGS (3)
  1. CISPLATIN [Suspect]
     Active Substance: CISPLATIN
     Indication: Testicular seminoma (pure) stage I
     Dosage: STRE NGTH: 1 MG/ML, EFG, 1?VIAL OF 50 ML, 43MG EVERY 3 WEEKS
     Route: 042
     Dates: start: 20210920, end: 20211122
  2. ETOPOSIDE [Suspect]
     Active Substance: ETOPOSIDE
     Indication: Testicular seminoma (pure) stage I
     Dosage: STRENGTH: 20 MG/ML, EFG, 1?VIAL OF 50 ML, 213 MG EVERY 3 WEEKS
     Route: 042
     Dates: start: 20210920, end: 20211122
  3. BLEOMYCIN [Suspect]
     Active Substance: BLEOMYCIN SULFATE
     Indication: Seminoma
     Dosage: STRENGTH: 15,000 IU,  EFG, 1 VIAL, 30IU EVERY 3 WEEKS
     Route: 042
     Dates: start: 20210920, end: 20211122

REACTIONS (3)
  - Pancytopenia [Recovered/Resolved]
  - Rectal haemorrhage [Recovered/Resolved]
  - Diarrhoea [Recovered/Resolved]

NARRATIVE: CASE EVENT DATE: 20211004
